FAERS Safety Report 8101792-0 (Version None)
Quarter: 2012Q1

REPORT INFORMATION
  Report Type: 
  Country: None (occurrence: None)
  Receive Date: 20120131
  Receipt Date: 20120125
  Transmission Date: 20120608
  Serious: Yes (Hospitalization, Other)
  Sender: FDA-Public Use
  Company Number: PHEH2012US002179

PATIENT
  Sex: Male

DRUGS (4)
  1. PERPHENAZINE [Suspect]
     Dosage: 8 MG 3XDAY
  2. CLOZARIL [Suspect]
     Dosage: UNK UKN, UNK
  3. CLOZAPINE [Suspect]
     Dosage: UNK UKN, UNK
  4. CLOZARIL [Suspect]
     Dosage: 100 MG 7 A DAY
     Route: 065

REACTIONS (6)
  - VOMITING [None]
  - DECREASED APPETITE [None]
  - APPENDICITIS PERFORATED [None]
  - INTENTIONAL SELF-INJURY [None]
  - INTESTINAL PERFORATION [None]
  - FATIGUE [None]
